FAERS Safety Report 25914823 (Version 1)
Quarter: 2025Q4

REPORT INFORMATION
  Report Type: Spontaneous
  Country: US (occurrence: US)
  Receive Date: 20251013
  Receipt Date: 20251013
  Transmission Date: 20260118
  Serious: Yes (Hospitalization, Disabling)
  Sender: DERMARITE INDUSTRIES
  Company Number: US-DERMARITE INDUSTRIES, LLC.-2025-DER-US000060

PATIENT

DRUGS (1)
  1. ZINC ACETATE [Suspect]
     Active Substance: ZINC ACETATE
     Indication: Product used for unknown indication
     Dosage: UNKNOWN
     Route: 065

REACTIONS (10)
  - Endocarditis [Unknown]
  - Staphylococcal bacteraemia [Unknown]
  - Acute kidney injury [Unknown]
  - Dizziness [Unknown]
  - Diarrhoea [Unknown]
  - Hypotension [Unknown]
  - Intensive care [Unknown]
  - Haemodialysis [Unknown]
  - Fall [Unknown]
  - Wheelchair user [Unknown]
